FAERS Safety Report 8849357 (Version 1)
Quarter: 2012Q4

REPORT INFORMATION
  Report Type: Spontaneous
  Country: US (occurrence: None)
  Receive Date: 20121018
  Receipt Date: 20121018
  Transmission Date: 20130627
  Serious: No
  Sender: FDA-Public Use
  Company Number: None

PATIENT
  Age: 54 Year
  Sex: Male
  Weight: 111.4 kg

DRUGS (1)
  1. ALTEPLASE [Suspect]
     Indication: ISCHEMIC STROKE
     Route: 042
     Dates: start: 20120903, end: 20120903

REACTIONS (2)
  - Haemorrhage intracranial [None]
  - Blood pressure increased [None]
